FAERS Safety Report 24236601 (Version 1)
Quarter: 2024Q3

REPORT INFORMATION
  Report Type: Spontaneous
  Country: ZA (occurrence: None)
  Receive Date: 20240822
  Receipt Date: 20240822
  Transmission Date: 20241016
  Serious: Yes (Hospitalization)
  Sender: ASTRAZENECA
  Company Number: 2024A187482

PATIENT
  Age: 43 Year
  Sex: Female

DRUGS (5)
  1. BUDESONIDE\FORMOTEROL [Suspect]
     Active Substance: BUDESONIDE\FORMOTEROL
     Indication: Asthma
     Dosage: 160 UG/INHAL, UNKNOWN UNKNOWN
     Route: 055
  2. BUDESONIDE\FORMOTEROL [Suspect]
     Active Substance: BUDESONIDE\FORMOTEROL
     Indication: Asthma
     Dosage: 4.5 UG/INHAL, UNKNOWN UNKNOWN
     Route: 055
  3. ENBREL MYCLIC PEN [Concomitant]
     Indication: Rheumatoid arthritis
     Dosage: 50.0MG UNKNOWN
     Route: 048
  4. FLORINEF ACETATE [Concomitant]
     Active Substance: FLUDROCORTISONE ACETATE
     Indication: Addison^s disease
     Dosage: 0.1MG UNKNOWN
     Route: 048
  5. MELNOC XR [Concomitant]
     Indication: Sleep disorder
     Dosage: 2.0MG UNKNOWN
     Route: 048

REACTIONS (1)
  - Cystitis [Unknown]
